FAERS Safety Report 10146030 (Version 3)
Quarter: 2014Q2

REPORT INFORMATION
  Report Type: Report from Study
  Country: AU (occurrence: AU)
  Receive Date: 20140501
  Receipt Date: 20140525
  Transmission Date: 20141212
  Serious: Yes (Death, Life-Threatening, Other)
  Sender: FDA-Public Use
  Company Number: PHHY2014AU052675

PATIENT
  Age: 84 Year
  Sex: Female
  Weight: 69 kg

DRUGS (5)
  1. ACLASTA [Suspect]
     Dosage: 5 MG, UNK
     Route: 042
     Dates: start: 20130419
  2. ACLASTA [Suspect]
     Dosage: 5 MG, UNK
     Route: 042
     Dates: start: 20140422
  3. OLMETEC [Concomitant]
     Dosage: UNK UKN, QD
  4. NORVASC [Concomitant]
     Dosage: 10 MG, QD
  5. ANTIARRHYTHMIC AGENTS [Concomitant]
     Dosage: UNK UKN, UNK

REACTIONS (9)
  - Circulatory collapse [Fatal]
  - Cold sweat [Fatal]
  - Dyspnoea [Fatal]
  - Cardiac arrest [Fatal]
  - Type 2 diabetes mellitus [Not Recovered/Not Resolved]
  - Bursitis [Unknown]
  - Sciatica [Unknown]
  - Pain in extremity [Unknown]
  - Arthralgia [Unknown]
